FAERS Safety Report 9547205 (Version 1)
Quarter: 2013Q2

REPORT INFORMATION
  Report Type: Spontaneous
  Country: US (occurrence: None)
  Receive Date: 20130606
  Receipt Date: 20130606
  Transmission Date: 20140414
  Serious: No
  Sender: FDA-Public Use
  Company Number: 163-POMAL-13043864

PATIENT
  Age: 66 Year
  Sex: Female
  Weight: 52.62 kg

DRUGS (7)
  1. POMALYST (POMALIDOMIDE) (4 MILLIGRAM, CAPSULES) [Suspect]
     Indication: PLASMA CELL MYELOMA
     Dosage: 21 IN 28 D
     Route: 048
     Dates: start: 201302, end: 20130412
  2. LEVOFLOXACIN (LEVOFLOXACIN) [Concomitant]
  3. PREVACID (LANSOPRAZOLE) [Concomitant]
  4. MULTIVITAMINS [Concomitant]
  5. B-COMPLEX (BECOSYM FORTE) [Concomitant]
  6. OMEGA-3 (OMEGA-3 TRIGLYCERIDES) [Concomitant]
  7. BIOTIN [Concomitant]

REACTIONS (1)
  - Thrombocytopenia [None]
